FAERS Safety Report 25657842 (Version 1)
Quarter: 2025Q3

REPORT INFORMATION
  Report Type: Report from Study
  Country: EU (occurrence: EU)
  Receive Date: 20250808
  Receipt Date: 20250808
  Transmission Date: 20251021
  Serious: Yes (Death, Hospitalization)
  Sender: ROCHE
  Company Number: EU-ROCHE-10000355984

PATIENT

DRUGS (20)
  1. RITUXIMAB [Suspect]
     Active Substance: RITUXIMAB
     Indication: B-cell lymphoma
     Route: 042
  2. RITUXIMAB [Suspect]
     Active Substance: RITUXIMAB
     Route: 048
  3. POLATUZUMAB VEDOTIN [Suspect]
     Active Substance: POLATUZUMAB VEDOTIN
     Indication: B-cell lymphoma
     Route: 042
  4. CYCLOPHOSPHAMIDE [Suspect]
     Active Substance: CYCLOPHOSPHAMIDE
     Indication: B-cell lymphoma
     Dosage: FOR 5 DAYS EVERY 3 WEEKS UP TO 8 CYCLES
     Route: 048
  5. CYCLOPHOSPHAMIDE [Suspect]
     Active Substance: CYCLOPHOSPHAMIDE
     Route: 042
  6. DOXORUBICIN HYDROCHLORIDE [Suspect]
     Active Substance: DOXORUBICIN HYDROCHLORIDE
     Indication: B-cell lymphoma
     Route: 048
  7. DOXORUBICIN HYDROCHLORIDE [Suspect]
     Active Substance: DOXORUBICIN HYDROCHLORIDE
     Route: 042
  8. VINCRISTINE [Suspect]
     Active Substance: VINCRISTINE
     Indication: B-cell lymphoma
     Route: 048
  9. VINCRISTINE [Suspect]
     Active Substance: VINCRISTINE
     Route: 042
  10. PREDNISONE [Suspect]
     Active Substance: PREDNISONE
     Indication: B-cell lymphoma
     Route: 048
  11. PREDNISONE [Suspect]
     Active Substance: PREDNISONE
     Route: 042
  12. GEMCITABINE [Suspect]
     Active Substance: GEMCITABINE
     Indication: B-cell lymphoma
     Route: 042
  13. OXALIPLATIN [Suspect]
     Active Substance: OXALIPLATIN
     Indication: B-cell lymphoma
     Route: 042
  14. BENDAMUSTINE [Suspect]
     Active Substance: BENDAMUSTINE
     Indication: B-cell lymphoma
     Route: 042
  15. TAFASITAMAB [Suspect]
     Active Substance: TAFASITAMAB
     Indication: B-cell lymphoma
     Route: 042
  16. LENALIDOMIDE [Suspect]
     Active Substance: LENALIDOMIDE
     Indication: B-cell lymphoma
     Route: 042
  17. ETOPOSIDE [Suspect]
     Active Substance: ETOPOSIDE
     Indication: B-cell lymphoma
     Dosage: FOR 3 DAYS EVERY 3 WEEKS UP TO 8 CYCLES
     Route: 048
  18. DEXAMETHASONE [Suspect]
     Active Substance: DEXAMETHASONE
     Indication: B-cell lymphoma
     Route: 042
  19. CYTARABINE [Suspect]
     Active Substance: CYTARABINE
     Indication: B-cell lymphoma
     Route: 042
  20. CISPLATIN [Suspect]
     Active Substance: CISPLATIN
     Indication: B-cell lymphoma
     Route: 042

REACTIONS (3)
  - Infection [Fatal]
  - Sepsis [Fatal]
  - Bacterial infection [Unknown]
